FAERS Safety Report 6794527-5 (Version None)
Quarter: 2010Q2

REPORT INFORMATION
  Report Type: 
  Country: None (occurrence: None)
  Receive Date: 20100625
  Receipt Date: 20091217
  Transmission Date: 20101027
  Serious: No
  Sender: FDA-Public Use
  Company Number: A0836418A

PATIENT
  Age: 37 Year
  Sex: Male

DRUGS (5)
  1. ALBUTEROL [Suspect]
     Indication: DRUG USE FOR UNKNOWN INDICATION
     Route: 055
     Dates: start: 20090922
  2. BROVANA [Suspect]
     Indication: CHRONIC OBSTRUCTIVE PULMONARY DISEASE
     Route: 055
     Dates: start: 20090922, end: 20091009
  3. QVAR 40 [Suspect]
     Indication: DRUG USE FOR UNKNOWN INDICATION
     Route: 055
     Dates: start: 20090922
  4. BENADRYL [Concomitant]
  5. ALBUTEROL [Concomitant]
     Route: 048

REACTIONS (10)
  - CHOKING SENSATION [None]
  - DRUG INEFFECTIVE [None]
  - DRY MOUTH [None]
  - DYSPNOEA [None]
  - INCREASED UPPER AIRWAY SECRETION [None]
  - OROPHARYNGEAL DISCOMFORT [None]
  - OVERDOSE [None]
  - POST-TUSSIVE VOMITING [None]
  - PRODUCTIVE COUGH [None]
  - SPUTUM INCREASED [None]
